FAERS Safety Report 12211722 (Version 3)
Quarter: 2017Q1

REPORT INFORMATION
  Report Type: Spontaneous
  Country: US (occurrence: US)
  Receive Date: 20160325
  Receipt Date: 20170228
  Transmission Date: 20170428
  Serious: No
  Sender: FDA-Public Use
  Company Number: US-VERTEX PHARMACEUTICALS-2016-001971

PATIENT
  Sex: Male

DRUGS (30)
  1. HUMALOG [Concomitant]
     Active Substance: INSULIN LISPRO
     Dosage: 9 UT BEFORE BREAKFAST,10 UT BEFORE LUNCH,DINNER
     Route: 058
  2. AZITHROMYCIN ANHYDROUS. [Concomitant]
     Active Substance: AZITHROMYCIN ANHYDROUS
     Dosage: 1 DF, TID ON MON, WED, FRI
     Route: 048
  3. CLONAZEPAM. [Concomitant]
     Active Substance: CLONAZEPAM
     Dosage: TAKE ONE AND A HALF TABLET TWICE A DAY AND ONE TABLET ONCE A DAY AT NOON
  4. ORKAMBI [Suspect]
     Active Substance: IVACAFTOR\LUMACAFTOR
     Indication: CYSTIC FIBROSIS
     Dosage: 2 DF (400-250 MG), BID WITH FAT FOOD
     Route: 048
     Dates: start: 20150825
  5. FOSAMAX PLUS D [Concomitant]
     Active Substance: ALENDRONATE SODIUM\CHOLECALCIFEROL
     Dosage: 1 DF EVERY WEEK TO BE TAKEN WITH FULL GLASS OF WATER
     Route: 048
  6. SYMBICORT [Concomitant]
     Active Substance: BUDESONIDE\FORMOTEROL FUMARATE DIHYDRATE
     Dosage: INHALE 2 PUFFS , BID
     Route: 055
  7. CALCIUM CARBONATE. [Concomitant]
     Active Substance: CALCIUM CARBONATE
     Dosage: 1 DF, TID
     Route: 048
  8. ZYPREXA [Concomitant]
     Active Substance: OLANZAPINE
     Dosage: 1 DF, BID
     Route: 048
  9. LOSARTAN. [Concomitant]
     Active Substance: LOSARTAN
     Dosage: 1 DF, QD. TAKE FOR BLOOD PRESSURE EVERDAY FOR ONE WEEK
     Route: 048
  10. BETAMETHASONE DIPROPIONATE. [Concomitant]
     Active Substance: BETAMETHASONE DIPROPIONATE
     Dosage: UNK, QD
  11. SIMVASTATIN. [Concomitant]
     Active Substance: SIMVASTATIN
     Dosage: 1 DF, BID
     Route: 048
  12. CREON [Concomitant]
     Active Substance: PANCRELIPASE AMYLASE\PANCRELIPASE LIPASE\PANCRELIPASE PROTEASE
     Dosage: 4 DF, TID WITH MEALS AND 3 DF WITH SNACKS
     Route: 048
  13. MELATONIN [Concomitant]
     Active Substance: MELATONIN
     Dosage: 1 DF, QD
     Route: 048
  14. MIRALAX [Concomitant]
     Active Substance: POLYETHYLENE GLYCOL 3350
     Indication: CONSTIPATION
     Dosage: TAKE 17 G MIXED WITH 8 OZ WATER, JUICE. SODA, COFFEE OR TEA, PRN
  15. GLUCAGON. [Concomitant]
     Active Substance: GLUCAGON
     Dosage: UNK, PRN
  16. TOBI [Concomitant]
     Active Substance: TOBRAMYCIN
     Dosage: 4 DF, BID
     Route: 055
  17. PROAIR HFA [Concomitant]
     Active Substance: ALBUTEROL SULFATE
     Dosage: 2 PUFFS, BID AND 4 HOURLY, PRN
     Route: 055
  18. PULMOZYME [Concomitant]
     Active Substance: DORNASE ALFA
     Dosage: 2.5 MG, QD
     Route: 055
  19. VITAMIN D3 [Concomitant]
     Active Substance: CHOLECALCIFEROL
     Dosage: 1 DF, QD, WITH FOOD
     Route: 048
  20. GUANFACINE. [Concomitant]
     Active Substance: GUANFACINE
     Dosage: 1 DF, QD, (AT BED TIME)
     Route: 048
  21. AUGMENTIN [Concomitant]
     Active Substance: AMOXICILLIN\CLAVULANATE POTASSIUM
     Dosage: 875MG-125MG TABLET, 1 DF, BID
     Route: 048
  22. AQUADEKS [Concomitant]
     Active Substance: MINERALS\VITAMINS
     Dosage: 2 DF, BID
     Route: 048
  23. NEOMYCIN AND POLYMYXIN B SULFATES, BACITRACIN [Concomitant]
  24. CYMBALTA [Concomitant]
     Active Substance: DULOXETINE HYDROCHLORIDE
     Dosage: 1 DF, QD
     Route: 048
  25. LEVEMIR [Concomitant]
     Active Substance: INSULIN DETEMIR
     Dosage: 14 UT, QD
     Route: 058
  26. OMEPRAZOLE. [Concomitant]
     Active Substance: OMEPRAZOLE
     Indication: PRODUCT USED FOR UNKNOWN INDICATION
     Dosage: ONE CAPSULE EVERY DAY BEFORE MEAL
     Route: 048
  27. NICORETTE [Concomitant]
     Active Substance: NICOTINE
     Dosage: ONE PEICE OF GUM VERY TWO HOURS , PRN
     Route: 048
  28. VISTARIL [Concomitant]
     Active Substance: HYDROXYZINE PAMOATE
     Dosage: 1 DF, PRN,QD
     Route: 048
  29. SODIUM CHLORIDE. [Concomitant]
     Active Substance: SODIUM CHLORIDE
     Dosage: 1 VIAL, BID
     Route: 055
  30. DEBROX [Concomitant]
     Active Substance: CARBAMIDE PEROXIDE
     Dosage: FIVE TO TEN DROPS IN EACH EAR DAILY
     Route: 001

REACTIONS (1)
  - Drug screen false positive [Recovered/Resolved]

NARRATIVE: CASE EVENT DATE: 2016
